FAERS Safety Report 6348598-0 (Version None)
Quarter: 2009Q3

REPORT INFORMATION
  Report Type: 
  Country: None (occurrence: None)
  Receive Date: 20090911
  Receipt Date: 20090902
  Transmission Date: 20100115
  Serious: Yes (Hospitalization)
  Sender: FDA-Public Use
  Company Number: FR-ROCHE-654010

PATIENT
  Sex: Male

DRUGS (5)
  1. RIVOTRIL [Suspect]
     Indication: DRUG USE FOR UNKNOWN INDICATION
     Route: 065
     Dates: start: 20090131, end: 20090131
  2. TRANXENE [Suspect]
     Indication: DRUG USE FOR UNKNOWN INDICATION
     Dosage: DRUG: TRANXENE 10 MG CAPSULE
     Route: 048
     Dates: start: 20090131, end: 20090131
  3. SUBUTEX [Suspect]
     Indication: DRUG USE FOR UNKNOWN INDICATION
     Dosage: DRUG: SUBUTEX 8 MG TABLET
     Route: 048
  4. SUBUTEX [Suspect]
     Route: 048
  5. ALCOHOL [Concomitant]

REACTIONS (1)
  - SYNCOPE [None]
